FAERS Safety Report 26043317 (Version 2)
Quarter: 2025Q4

REPORT INFORMATION
  Report Type: Report from Study
  Country: JP (occurrence: JP)
  Receive Date: 20251113
  Receipt Date: 20251120
  Transmission Date: 20260118
  Serious: No
  Sender: UCB
  Company Number: JP-UCBJ-CD202505068UCBPHAPROD

PATIENT
  Age: 54 Year
  Weight: 50.5 kg

DRUGS (18)
  1. FENFLURAMINE HYDROCHLORIDE [Suspect]
     Active Substance: FENFLURAMINE HYDROCHLORIDE
     Indication: Lennox-Gastaut syndrome
     Dosage: 0.05 MILLIGRAM/KILOGRAM, 2X/DAY (BID)
  2. FENFLURAMINE HYDROCHLORIDE [Suspect]
     Active Substance: FENFLURAMINE HYDROCHLORIDE
     Dosage: 0.75 MILLIGRAM/KILOGRAM, 2X/DAY (BID)
  3. FENFLURAMINE HYDROCHLORIDE [Suspect]
     Active Substance: FENFLURAMINE HYDROCHLORIDE
     Dosage: 0.1 MILLIGRAM/KILOGRAM, 2X/DAY (BID)
  4. FENFLURAMINE HYDROCHLORIDE [Suspect]
     Active Substance: FENFLURAMINE HYDROCHLORIDE
     Dosage: 0.125 MILLIGRAM/KILOGRAM, 2X/DAY (BID)
  5. FENFLURAMINE HYDROCHLORIDE [Suspect]
     Active Substance: FENFLURAMINE HYDROCHLORIDE
     Dosage: 0.15 MILLIGRAM/KILOGRAM, 2X/DAY (BID)
  6. FENFLURAMINE HYDROCHLORIDE [Suspect]
     Active Substance: FENFLURAMINE HYDROCHLORIDE
     Dosage: 0.175 MILLIGRAM/KILOGRAM, 2X/DAY (BID)
  7. FENFLURAMINE HYDROCHLORIDE [Suspect]
     Active Substance: FENFLURAMINE HYDROCHLORIDE
     Dosage: 0.2 MILLIGRAM/KILOGRAM, 2X/DAY (BID)
  8. FENFLURAMINE HYDROCHLORIDE [Suspect]
     Active Substance: FENFLURAMINE HYDROCHLORIDE
     Dosage: 0.225 MILLIGRAM/KILOGRAM, 2X/DAY (BID)
  9. FENFLURAMINE HYDROCHLORIDE [Suspect]
     Active Substance: FENFLURAMINE HYDROCHLORIDE
     Dosage: 0.245 MILLIGRAM/KILOGRAM, 2X/DAY (BID)
  10. FENFLURAMINE HYDROCHLORIDE [Suspect]
     Active Substance: FENFLURAMINE HYDROCHLORIDE
     Dosage: 0.2 MILLIGRAM/KILOGRAM, 2X/DAY (BID)
  11. FENFLURAMINE HYDROCHLORIDE [Suspect]
     Active Substance: FENFLURAMINE HYDROCHLORIDE
     Dosage: 0.3 MILLIGRAM/KILOGRAM, 2X/DAY (BID)
  12. VIMPAT [Suspect]
     Active Substance: LACOSAMIDE
     Indication: Lennox-Gastaut syndrome
     Dosage: 400 MILLIGRAM DAILY
  13. VIMPAT [Suspect]
     Active Substance: LACOSAMIDE
     Dosage: 250 MILLIGRAM DAILY
  14. VIMPAT [Suspect]
     Active Substance: LACOSAMIDE
     Dosage: 200 MILLIGRAM DAILY
  15. VALPROATE SODIUM [Suspect]
     Active Substance: VALPROATE SODIUM
     Indication: Lennox-Gastaut syndrome
     Dosage: 400 MILLIGRAM
  16. VALPROATE SODIUM [Suspect]
     Active Substance: VALPROATE SODIUM
     Dosage: 600 MILLIGRAM, ONCE DAILY (QD)
  17. LAMOTRIGINE [Suspect]
     Active Substance: LAMOTRIGINE
     Indication: Lennox-Gastaut syndrome
     Dosage: 200 MILLIGRAM, ONCE DAILY (QD)
  18. PHENYTOIN [Concomitant]
     Active Substance: PHENYTOIN
     Indication: Lennox-Gastaut syndrome
     Dosage: 162.5 MILLIGRAM PER DAY

REACTIONS (3)
  - Dizziness [Unknown]
  - Prescribed underdose [Unknown]
  - Off label use [Unknown]
